FAERS Safety Report 25244051 (Version 1)
Quarter: 2025Q2

REPORT INFORMATION
  Report Type: Spontaneous
  Country: US (occurrence: US)
  Receive Date: 20250428
  Receipt Date: 20250428
  Transmission Date: 20250716
  Serious: Yes (Other)
  Sender: SANOFI AVENTIS
  Company Number: US-SA-2025SA119903

PATIENT
  Sex: Female
  Weight: 67.5 kg

DRUGS (1)
  1. DUPIXENT [Suspect]
     Active Substance: DUPILUMAB
     Indication: Illness
     Dosage: 300 MG, QOW
     Route: 058
     Dates: start: 2024

REACTIONS (7)
  - Pulmonary oedema [Unknown]
  - Scratch [Unknown]
  - Dyspnoea [Unknown]
  - Asthma [Unknown]
  - Product dose omission issue [Unknown]
  - Pruritus [Unknown]
  - Product use in unapproved indication [Unknown]
